FAERS Safety Report 4761912-2 (Version None)
Quarter: 2005Q3

REPORT INFORMATION
  Report Type: 
  Country: None (occurrence: None)
  Receive Date: 20050831
  Receipt Date: 20041117
  Transmission Date: 20060218
  Serious: Yes (Hospitalization)
  Sender: FDA-Public Use
  Company Number: 239249

PATIENT
  Age: 75 Year
  Sex: Female
  Weight: 55.8 kg

DRUGS (15)
  1. NOVOLIN 70/30 [Suspect]
     Indication: INSULIN-REQUIRING TYPE II DIABETES MELLITUS
     Dosage: 23 IU, QD, SUBCUTANEOUS;  38 IU, QD, SUBCUTANEOUS
     Route: 058
     Dates: start: 20040902, end: 20040903
  2. NOVOLIN 70/30 [Suspect]
     Indication: INSULIN-REQUIRING TYPE II DIABETES MELLITUS
     Dosage: 23 IU, QD, SUBCUTANEOUS;  38 IU, QD, SUBCUTANEOUS
     Route: 058
     Dates: start: 19900101
  3. NOVOFINE 30 (NEEDLE) [Concomitant]
  4. LOTREL [Concomitant]
  5. CLONIDINE [Concomitant]
  6. ATENOLOL [Concomitant]
  7. LISINOPRIL [Concomitant]
  8. CARBIDOPE W/LEVODOPA (CARBIDOPA, LEVODOPA) [Concomitant]
  9. TRAMADOL HCL [Concomitant]
  10. HYDROCODONE W/APAP (HYDROCODONE, PARACETAMOL) [Concomitant]
  11. FUROSEMIDE [Concomitant]
  12. LIPITOR [Concomitant]
  13. CLARINEX  /USA/ (DESLORATADINE) [Concomitant]
  14. NEXIUM [Concomitant]
  15. KLOR-CON [Concomitant]

REACTIONS (2)
  - ACCIDENTAL OVERDOSE [None]
  - HYPOGLYCAEMIC COMA [None]
